FAERS Safety Report 23705580 (Version 2)
Quarter: 2024Q3

REPORT INFORMATION
  Report Type: Spontaneous
  Country: US (occurrence: US)
  Receive Date: 20240404
  Receipt Date: 20240723
  Transmission Date: 20241017
  Serious: Yes (Hospitalization, Disabling, Other)
  Sender: AMGEN
  Company Number: US-HORIZON THERAPEUTICS-HZN-2024-003831

PATIENT
  Age: 59 Year
  Sex: Female

DRUGS (52)
  1. TEPEZZA [Suspect]
     Active Substance: TEPROTUMUMAB-TRBW
     Indication: Endocrine ophthalmopathy
     Dosage: UNK, FIRST INFUSION
     Route: 042
     Dates: start: 202107
  2. TEPEZZA [Suspect]
     Active Substance: TEPROTUMUMAB-TRBW
     Dosage: UNK, UNKNOWN INFUSION
     Route: 042
     Dates: start: 202208
  3. TEPEZZA [Suspect]
     Active Substance: TEPROTUMUMAB-TRBW
     Dosage: 658 MILLIGRAM
     Route: 042
     Dates: start: 20220701
  4. TEPEZZA [Suspect]
     Active Substance: TEPROTUMUMAB-TRBW
     Dosage: 658 MILLIGRAM
     Route: 042
     Dates: start: 20220812
  5. TEPEZZA [Suspect]
     Active Substance: TEPROTUMUMAB-TRBW
     Dosage: 1298 MILLIGRAM
     Route: 042
     Dates: start: 20220902
  6. TEPEZZA [Suspect]
     Active Substance: TEPROTUMUMAB-TRBW
     Dosage: 1382 MILLIGRAM
     Route: 042
     Dates: start: 20220729
  7. PREDNISONE [Suspect]
     Active Substance: PREDNISONE
     Indication: Hyperglycaemia
     Dosage: UNK
     Route: 065
  8. ASPIRIN [Concomitant]
     Active Substance: ASPIRIN
     Dosage: 81 MILLIGRAM
     Route: 048
  9. BIOTIN [Concomitant]
     Active Substance: BIOTIN
     Dosage: 5000 MICROGRAM
     Route: 048
  10. VITAMIN D3 [Concomitant]
     Active Substance: CHOLECALCIFEROL
     Dosage: 25 MICROGRAM, QD
     Route: 048
  11. MAGNESIUM [Concomitant]
     Active Substance: MAGNESIUM
     Dosage: 250 MILLIGRAM
     Route: 048
  12. IRON\VITAMINS [Concomitant]
     Active Substance: IRON\VITAMINS
     Dosage: UNK
     Route: 048
  13. NORVASC [Concomitant]
     Active Substance: AMLODIPINE BESYLATE
     Dosage: 10 MILLIGRAM
     Route: 048
  14. OMEPRAZOLE [Concomitant]
     Active Substance: OMEPRAZOLE
     Dosage: 40 MILLIGRAM, BID
     Route: 048
  15. BACLOFEN [Concomitant]
     Active Substance: BACLOFEN
     Dosage: 5 MILLIGRAM, TID
     Route: 048
  16. ONDANSETRON [Concomitant]
     Active Substance: ONDANSETRON
     Indication: Nausea
     Dosage: 4 MILLIGRAM, Q6H
     Route: 048
  17. ONDANSETRON [Concomitant]
     Active Substance: ONDANSETRON
     Indication: Vomiting
  18. XARELTO [Concomitant]
     Active Substance: RIVAROXABAN
     Dosage: 20 MILLIGRAM, QD
     Route: 048
  19. HYDROCHLOROTHIAZIDE [Concomitant]
     Active Substance: HYDROCHLOROTHIAZIDE
     Dosage: 12.5 MILLIGRAM, QD
     Route: 048
  20. LATANOPROST [Concomitant]
     Active Substance: LATANOPROST
     Dosage: 0.005 PERCENT, QD (ONE DROP)
     Route: 047
  21. METHIMAZOLE [Concomitant]
     Active Substance: METHIMAZOLE
     Dosage: 10 MILLIGRAM, BID (TWO TAB IN MORNING AND EVENING)
     Route: 048
  22. POTASSIUM IODIDE [Concomitant]
     Active Substance: POTASSIUM IODIDE
     Dosage: UNK UNK, BID
     Route: 048
  23. METHOCARBAMOL [Concomitant]
     Active Substance: METHOCARBAMOL
     Indication: Muscle spasms
     Dosage: 500 MILLIGRAM, BID
     Route: 048
  24. METFORMIN HYDROCHLORIDE [Concomitant]
     Active Substance: METFORMIN HYDROCHLORIDE
     Dosage: 500 MILLIGRAM
     Route: 048
  25. METOPROLOL SUCCINATE [Concomitant]
     Active Substance: METOPROLOL SUCCINATE
     Dosage: 25 MILLIGRAM, QD
     Route: 048
  26. ELIQUIS [Concomitant]
     Active Substance: APIXABAN
     Dosage: UNK
     Route: 065
  27. FAMOTIDINE [Concomitant]
     Active Substance: FAMOTIDINE
     Dosage: 40 MILLIGRAM, QD
     Route: 048
  28. OPTISON [Concomitant]
     Active Substance: HUMAN ALBUMIN MICROSPHERES\PERFLUTREN
     Dosage: 3 MILLILITER
     Route: 042
     Dates: start: 20220609
  29. LISINOPRIL [Concomitant]
     Active Substance: LISINOPRIL
     Dosage: UNK
     Route: 065
  30. COLCHICINE [Concomitant]
     Active Substance: COLCHICINE
     Dosage: 0.6 MILLIGRAM, BID
     Route: 048
  31. KETOROLAC TROMETHAMINE [Concomitant]
     Active Substance: KETOROLAC TROMETHAMINE
     Indication: Pain
     Dosage: 10 MILLIGRAM, Q6H
     Route: 048
  32. PROPARACAINE HYDROCHLORIDE [Concomitant]
     Active Substance: PROPARACAINE HYDROCHLORIDE
     Dosage: UNK
     Route: 065
  33. LIDOCAINE [Concomitant]
     Active Substance: LIDOCAINE
     Dosage: UNK
     Route: 065
  34. TYLENOL [Concomitant]
     Active Substance: ACETAMINOPHEN
     Dosage: 650 MILLIGRAM, Q6H
     Route: 048
  35. IOPAMIDOL [Concomitant]
     Active Substance: IOPAMIDOL
     Dosage: 80 MILLILITER
     Route: 042
  36. VOLTAREN [Concomitant]
     Active Substance: DICLOFENAC SODIUM
     Indication: Pain
     Dosage: 2 GRAM, TID (ONE PERCENT GEL)
     Route: 065
  37. SELENIUM [Concomitant]
     Active Substance: SELENIUM
     Dosage: 100 MICROGRAM, BID
     Route: 048
  38. ACETAMINOPHEN [Concomitant]
     Active Substance: ACETAMINOPHEN
     Indication: Neck pain
     Dosage: UNK
     Route: 065
  39. ACETAMINOPHEN [Concomitant]
     Active Substance: ACETAMINOPHEN
     Indication: Back pain
  40. ATROPINE SULFATE [Concomitant]
     Active Substance: ATROPINE SULFATE
     Dosage: 1 MILLIGRAM
     Route: 042
  41. APRESOLINE HYDROCHLORIDE [Concomitant]
     Active Substance: HYDRALAZINE HYDROCHLORIDE
     Dosage: 10 MILLIGRAM, Q6H
     Route: 048
  42. ATROVENT [Concomitant]
     Active Substance: IPRATROPIUM BROMIDE
     Dosage: 0.5 MILLIGRAM
     Dates: start: 20220924
  43. MELATONIN [Concomitant]
     Active Substance: MELATONIN
     Dosage: 3 MILLIGRAM, QHS
     Route: 048
  44. SENOKOT-S [Concomitant]
     Active Substance: DOCUSATE SODIUM\SENNOSIDES
     Dosage: UNK UNK, QD
     Route: 048
  45. GLUCAGEN [Concomitant]
     Active Substance: GLUCAGON HYDROCHLORIDE
     Dosage: 1 MILLIGRAM
     Route: 030
  46. LANTUS [Concomitant]
     Active Substance: INSULIN GLARGINE
     Dosage: 10 UNIT, Q12H
     Route: 058
  47. HUMALOG [Concomitant]
     Active Substance: INSULIN LISPRO
     Dosage: UNK UNK, TID
     Route: 058
  48. MAALOX ANTACID [Concomitant]
     Active Substance: ALUMINUM HYDROXIDE\DIMETHICONE\MAGNESIUM HYDROXIDE
     Dosage: 30 MILLILITER, Q6H
     Route: 048
  49. SOLU-MEDROL [Concomitant]
     Active Substance: METHYLPREDNISOLONE SODIUM SUCCINATE
     Dosage: 40 MILLIGRAM, Q8H
     Route: 042
  50. AMOXICILLIN AND CLAVULANATE POTASSIUM [Concomitant]
     Active Substance: AMOXICILLIN\CLAVULANATE POTASSIUM
     Dosage: 1000 MILLIGRAM, BID
     Route: 048
  51. BARIUM SULFATE [Concomitant]
     Active Substance: BARIUM SULFATE
     Dosage: UNK
     Route: 048
  52. UNASYN [Concomitant]
     Active Substance: AMPICILLIN SODIUM\SULBACTAM SODIUM
     Dosage: UNK
     Route: 065

REACTIONS (101)
  - Deafness permanent [Not Recovered/Not Resolved]
  - Disability [Unknown]
  - Physical disability [Unknown]
  - Arrhythmia [Unknown]
  - Blindness unilateral [Not Recovered/Not Resolved]
  - Dyspnoea [Unknown]
  - Blood pressure systolic increased [Unknown]
  - Chest pain [Unknown]
  - Hyperthyroidism [Unknown]
  - Atrio-oesophageal fistula [Unknown]
  - Pulmonary vein stenosis [Unknown]
  - Myopericarditis [Unknown]
  - White blood cell count increased [Unknown]
  - Graves^ disease [Unknown]
  - Troponin I increased [Unknown]
  - N-terminal prohormone brain natriuretic peptide increased [Unknown]
  - Hyperglycaemia [Unknown]
  - Atrial fibrillation [Unknown]
  - Concomitant disease aggravated [Unknown]
  - Tinnitus [Unknown]
  - Injury [Unknown]
  - Pain [Unknown]
  - Anxiety [Unknown]
  - Deformity [Unknown]
  - Anhedonia [Unknown]
  - Discomfort [Unknown]
  - Emotional distress [Unknown]
  - Economic problem [Unknown]
  - Product quality issue [Unknown]
  - Dysphagia [Unknown]
  - Palpitations [Unknown]
  - Nervousness [Unknown]
  - Photophobia [Unknown]
  - Carbon dioxide decreased [Unknown]
  - Blood alkaline phosphatase increased [Unknown]
  - Glycosylated haemoglobin increased [Unknown]
  - Blood thyroid stimulating hormone decreased [Unknown]
  - Thyroxine free increased [Unknown]
  - Tri-iodothyronine free increased [Unknown]
  - Tri-iodothyronine increased [Unknown]
  - Thyroid stimulating immunoglobulin [Unknown]
  - Hypoacusis [Unknown]
  - Muscle spasms [Unknown]
  - Dizziness [Unknown]
  - Intermittent claudication [Unknown]
  - Paraesthesia [Unknown]
  - Hypoaesthesia [Unknown]
  - Nasal congestion [Unknown]
  - Ear pain [Unknown]
  - Upper-airway cough syndrome [Unknown]
  - Rhinorrhoea [Unknown]
  - Cough [Unknown]
  - Chest discomfort [Unknown]
  - Myalgia [Unknown]
  - Wheezing [Unknown]
  - Costochondritis [Unknown]
  - Abdominal pain upper [Unknown]
  - Breast tenderness [Unknown]
  - Insomnia [Unknown]
  - Defaecation urgency [Unknown]
  - Chronic gastritis [Unknown]
  - Arthralgia [Unknown]
  - Neuralgia [Unknown]
  - Mood altered [Unknown]
  - Chills [Unknown]
  - Dental discomfort [Unknown]
  - Neck pain [Unknown]
  - Musculoskeletal stiffness [Unknown]
  - Peripheral swelling [Unknown]
  - Abdominal distension [Unknown]
  - Constipation [Unknown]
  - Back pain [Unknown]
  - Psychomotor hyperactivity [Unknown]
  - Alopecia [Unknown]
  - Temperature intolerance [Unknown]
  - Hepatic steatosis [Unknown]
  - Decreased appetite [Unknown]
  - Bowel movement irregularity [Unknown]
  - Blood alkaline phosphatase increased [Unknown]
  - Alanine aminotransferase increased [Unknown]
  - Aspartate aminotransferase increased [Unknown]
  - Visual acuity reduced [Unknown]
  - Dry skin [Unknown]
  - Visual impairment [Unknown]
  - Tremor [Unknown]
  - Haemoglobin decreased [Unknown]
  - Haematocrit decreased [Unknown]
  - Blood potassium decreased [Unknown]
  - Gastrooesophageal reflux disease [Unknown]
  - Orthopnoea [Unknown]
  - Swelling face [Unknown]
  - Parotitis [Unknown]
  - Pyrexia [Unknown]
  - Polyuria [Unknown]
  - Polydipsia [Unknown]
  - Hyperhidrosis [Unknown]
  - Asthenia [Unknown]
  - SARS-CoV-2 test positive [Recovered/Resolved]
  - Weight decreased [Unknown]
  - Headache [Unknown]
  - Fatigue [Unknown]

NARRATIVE: CASE EVENT DATE: 20220131
